FAERS Safety Report 19793747 (Version 2)
Quarter: 2021Q3

REPORT INFORMATION
  Report Type: Other
  Country: ZA (occurrence: ZA)
  Receive Date: 20210907
  Receipt Date: 20210913
  Transmission Date: 20211014
  Serious: Yes (Other)
  Sender: FDA-Public Use
  Company Number: ZA-ROCHE-2905626

PATIENT
  Age: 89 Year
  Sex: Male

DRUGS (2)
  1. LUCENTIS [Suspect]
     Active Substance: RANIBIZUMAB
     Indication: NEOVASCULAR AGE-RELATED MACULAR DEGENERATION
     Dosage: 0.5 MG, QMO (TREAT AND EXTEND)
     Route: 047
     Dates: start: 201701
  2. LUCENTIS [Suspect]
     Active Substance: RANIBIZUMAB
     Dosage: UNK (EVERY SIX TO EIGHT WEEKS)
     Route: 047

REACTIONS (7)
  - Visual impairment [Unknown]
  - Retinal thickening [Unknown]
  - Visual acuity reduced [Unknown]
  - Blindness [Unknown]
  - Drug ineffective [Unknown]
  - Retinal exudates [Unknown]
  - Retinal oedema [Unknown]

NARRATIVE: CASE EVENT DATE: 20200922
